FAERS Safety Report 18991104 (Version 1)
Quarter: 2021Q1

REPORT INFORMATION
  Report Type: Spontaneous
  Country: US (occurrence: US)
  Receive Date: 20210310
  Receipt Date: 20210310
  Transmission Date: 20210420
  Serious: Yes (Disabling, Other)
  Sender: FDA-Public Use
  Company Number: US-HIKMA PHARMACEUTICALS USA INC.-US-H14001-21-00974

PATIENT
  Sex: Male

DRUGS (1)
  1. METHADONE [Suspect]
     Active Substance: METHADONE HYDROCHLORIDE
     Indication: PRODUCT USED FOR UNKNOWN INDICATION
     Dosage: UNKNOWN
     Route: 065

REACTIONS (7)
  - Sensory overload [Unknown]
  - Learning disability [Unknown]
  - Attention deficit hyperactivity disorder [Unknown]
  - Developmental delay [Unknown]
  - Obsessive-compulsive disorder [Unknown]
  - Foetal exposure during pregnancy [Unknown]
  - Dyslexia [Unknown]
